FAERS Safety Report 12393931 (Version 1)
Quarter: 2016Q2

REPORT INFORMATION
  Report Type: Spontaneous
  Country: US (occurrence: US)
  Receive Date: 20160523
  Receipt Date: 20160523
  Transmission Date: 20160815
  Serious: No
  Sender: FDA-Public Use
  Company Number: GXBR2016US001124

PATIENT
  Sex: Female
  Weight: 59.41 kg

DRUGS (2)
  1. CEFTRIAXONE. [Suspect]
     Active Substance: CEFTRIAXONE
     Indication: PRODUCT USED FOR UNKNOWN INDICATION
     Dosage: UNK DF, UNK
     Route: 042
  2. AMOXICILLIN. [Suspect]
     Active Substance: AMOXICILLIN
     Indication: PRODUCT USED FOR UNKNOWN INDICATION
     Dosage: 500 MG, TID
     Route: 048
     Dates: start: 20151109

REACTIONS (7)
  - Weight decreased [Unknown]
  - Glossodynia [Unknown]
  - Tongue discolouration [Unknown]
  - Decreased appetite [Unknown]
  - Malaise [Unknown]
  - Dry mouth [Unknown]
  - Oral discomfort [Unknown]
